FAERS Safety Report 8515199-5 (Version None)
Quarter: 2012Q3

REPORT INFORMATION
  Report Type: 
  Country: None (occurrence: None)
  Receive Date: 20120717
  Receipt Date: 20120711
  Transmission Date: 20120928
  Serious: Yes (Hospitalization)
  Sender: FDA-Public Use
  Company Number: JP-GLAXOSMITHKLINE-B0814540A

PATIENT
  Age: 78 Year
  Sex: Female

DRUGS (8)
  1. ASPIRIN [Concomitant]
     Indication: DIABETES MELLITUS
     Route: 048
  2. ZOVIRAX [Suspect]
     Indication: PRODUCT USED FOR UNKNOWN INDICATION
     Dosage: 1500MG PER DAY
     Route: 042
     Dates: start: 20120702, end: 20120706
  3. ROCEPHIN [Concomitant]
     Route: 042
  4. AMPICILLIN [Concomitant]
     Route: 065
  5. STATINS [Concomitant]
     Indication: LIPIDS ABNORMAL
     Route: 048
  6. LOXONIN [Concomitant]
     Route: 065
  7. LYRICA [Concomitant]
     Route: 048
  8. VANCOMYCIN [Concomitant]
     Route: 065

REACTIONS (6)
  - RENAL DISORDER [None]
  - DRUG LEVEL INCREASED [None]
  - RESTLESSNESS [None]
  - DRUG CLEARANCE DECREASED [None]
  - ENCEPHALOPATHY [None]
  - DIALYSIS [None]
